FAERS Safety Report 9817577 (Version 1)
Quarter: 2014Q1

REPORT INFORMATION
  Report Type: Report from Study
  Country: US (occurrence: US)
  Receive Date: 20140115
  Receipt Date: 20140115
  Transmission Date: 20141002
  Serious: Yes (Other)
  Sender: FDA-Public Use
  Company Number: US-ROCHE-1333677

PATIENT
  Sex: Female

DRUGS (7)
  1. LUCENTIS [Suspect]
     Indication: AGE-RELATED MACULAR DEGENERATION
     Dosage: LEFT EYE
     Route: 050
  2. PANTOPRAZOLE [Concomitant]
     Indication: GASTROOESOPHAGEAL REFLUX DISEASE
  3. SPIRONOLACTONE [Concomitant]
     Indication: SENSATION OF PRESSURE
     Dosage: MORNING
     Route: 065
  4. LISINOPRIL [Concomitant]
  5. PLAVIX [Concomitant]
     Dosage: EVENING
     Route: 065
  6. SIMVASTATIN [Concomitant]
     Indication: BLOOD CHOLESTEROL
     Dosage: EVENING
     Route: 065
  7. ASPIRIN [Concomitant]
     Dosage: EVENING
     Route: 065

REACTIONS (2)
  - Blindness [Unknown]
  - Hypoacusis [Not Recovered/Not Resolved]
